FAERS Safety Report 10077580 (Version 1)
Quarter: 2014Q2

REPORT INFORMATION
  Report Type: Spontaneous
  Country: US (occurrence: US)
  Receive Date: 20140414
  Receipt Date: 20140414
  Transmission Date: 20141212
  Serious: No
  Sender: FDA-Public Use
  Company Number: US-BANPHARM-20131879

PATIENT
  Sex: Male

DRUGS (1)
  1. ALEVE LIQUID GELS 220 MG [Suspect]
     Indication: TOOTHACHE
     Dosage: 1 DF, BID,
     Route: 048
     Dates: start: 20131105, end: 20131105

REACTIONS (2)
  - Drug effect incomplete [Unknown]
  - Inappropriate schedule of drug administration [Unknown]
